FAERS Safety Report 4880370-0 (Version None)
Quarter: 2006Q1

REPORT INFORMATION
  Report Type: 
  Country: None (occurrence: None)
  Receive Date: 20060112
  Receipt Date: 20051203
  Transmission Date: 20060701
  Serious: Yes (Death)
  Sender: FDA-Public Use
  Company Number: 20052680

PATIENT
  Sex: Male

DRUGS (1)
  1. LIORESAL [Suspect]
     Indication: MUSCLE SPASTICITY
     Dosage: MCG, DAILY, INTRATHECAL
     Route: 037

REACTIONS (7)
  - ASPIRATION [None]
  - BRAIN DAMAGE [None]
  - CONVULSION [None]
  - HALLUCINATION [None]
  - INAPPROPRIATE ANTIDIURETIC HORMONE SECRETION [None]
  - RESPIRATORY ARREST [None]
  - TEMPERATURE REGULATION DISORDER [None]
